FAERS Safety Report 8858551 (Version 2)
Quarter: 2012Q4

REPORT INFORMATION
  Report Type: 
  Country: IT (occurrence: IT)
  Receive Date: 20121024
  Receipt Date: 20121105
  Transmission Date: 20130627
  Serious: Yes (Other)
  Sender: FDA-Public Use
  Company Number: IT-ROCHE-1145973

PATIENT

DRUGS (4)
  1. BEVACIZUMAB [Suspect]
     Indication: MALIGNANT GLIOMA
     Route: 042
  2. BEVACIZUMAB [Suspect]
     Route: 042
  3. FOTEMUSTINE [Suspect]
     Indication: MALIGNANT GLIOMA
     Route: 042
  4. FOTEMUSTINE [Suspect]
     Route: 042

REACTIONS (7)
  - Neutropenia [Unknown]
  - Central nervous system haemorrhage [Unknown]
  - Embolism venous [Unknown]
  - Proteinuria [Unknown]
  - Gastrointestinal perforation [Unknown]
  - Thrombocytopenia [Unknown]
  - Hypertransaminasaemia [Unknown]
